FAERS Safety Report 16022445 (Version 4)
Quarter: 2020Q2

REPORT INFORMATION
  Report Type: Spontaneous
  Country: US (occurrence: US)
  Receive Date: 20190301
  Receipt Date: 20200413
  Transmission Date: 20200713
  Serious: Yes (Hospitalization, Other)
  Sender: FDA-Public Use
  Company Number: US-PFIZER INC-2018488730

PATIENT
  Age: 30 Year
  Sex: Female

DRUGS (1)
  1. BOSULIF [Suspect]
     Active Substance: BOSUTINIB MONOHYDRATE
     Indication: CHRONIC MYELOID LEUKAEMIA
     Dosage: 300 MG, DAILY
     Dates: start: 20181003

REACTIONS (8)
  - Renal failure [Unknown]
  - Diarrhoea [Unknown]
  - Fluid overload [Unknown]
  - Diabetes mellitus [Unknown]
  - Hyperparathyroidism [Unknown]
  - Blood test abnormal [Unknown]
  - Pneumonia [Unknown]
  - Dyspnoea [Unknown]
